FAERS Safety Report 21286985 (Version 12)
Quarter: 2024Q2

REPORT INFORMATION
  Report Type: Spontaneous
  Country: US (occurrence: US)
  Receive Date: 20220902
  Receipt Date: 20240404
  Transmission Date: 20240715
  Serious: Yes (Other)
  Sender: FDA-Public Use
  Company Number: US-BRISTOL-MYERS SQUIBB COMPANY-2022-099290

PATIENT
  Age: 65 Year
  Sex: Female
  Weight: 34.11 kg

DRUGS (4)
  1. REVLIMID [Suspect]
     Active Substance: LENALIDOMIDE
     Indication: Plasma cell myeloma
     Dosage: FREQUENCY :  TAKE 1 CAPSULE (10MG TOTAL) BY MOUTH IN THE MORNING FOR 28 DAYS
     Route: 048
     Dates: start: 20210112
  2. REVLIMID [Suspect]
     Active Substance: LENALIDOMIDE
     Dosage: TAKE 1 CAPSULE BY MOUTH EVERY DAY FOR 28 DAYS
     Route: 048
     Dates: start: 20221205
  3. REVLIMID [Suspect]
     Active Substance: LENALIDOMIDE
     Dosage: TAKE 1 CAPSULE BY MOUTH ONCE DAILY FOR 21 DAYS ON, THEN 7 DAYS OFF.
     Route: 048
  4. REVLIMID [Suspect]
     Active Substance: LENALIDOMIDE
     Dosage: TAKE 1 CAPSULE BY MOUTH EVERY DAY FOR 28 DAYS
     Route: 048

REACTIONS (8)
  - Respiratory syncytial virus infection [Unknown]
  - Somnolence [Recovered/Resolved]
  - Inflammatory pain [Not Recovered/Not Resolved]
  - Pain [Not Recovered/Not Resolved]
  - Throat irritation [Recovered/Resolved]
  - Tooth disorder [Recovered/Resolved]
  - Yawning [Not Recovered/Not Resolved]
  - Fatigue [Recovering/Resolving]
